FAERS Safety Report 21908636 (Version 1)
Quarter: 2023Q1

REPORT INFORMATION
  Report Type: Spontaneous
  Country: US (occurrence: None)
  Receive Date: 20230124
  Receipt Date: 20230124
  Transmission Date: 20230417
  Serious: No
  Sender: FDA-Public Use
  Company Number: None

PATIENT
  Age: 45 Year
  Sex: 0

DRUGS (1)
  1. AMBRISENTAN [Suspect]
     Active Substance: AMBRISENTAN
     Indication: Pulmonary arterial hypertension
     Dosage: FREQUENCY : DAILY;?
     Route: 048

REACTIONS (8)
  - Dehydration [None]
  - Hallucination [None]
  - Influenza [None]
  - Therapy interrupted [None]
  - Dyspnoea [None]
  - Dysphagia [None]
  - Oligodipsia [None]
  - Drug dose titration not performed [None]

NARRATIVE: CASE EVENT DATE: 20230123
